FAERS Safety Report 5722146-8 (Version None)
Quarter: 2008Q2

REPORT INFORMATION
  Report Type: 
  Country: None (occurrence: None)
  Receive Date: 20080429
  Receipt Date: 20070509
  Transmission Date: 20081010
  Serious: No
  Sender: FDA-Public Use
  Company Number: US-ASTRAZENECA-2007UW11115

PATIENT
  Age: 69 Year
  Sex: Male
  Weight: 77.1 kg

DRUGS (4)
  1. NEXIUM [Suspect]
     Indication: GASTROOESOPHAGEAL REFLUX DISEASE
     Route: 048
     Dates: start: 20070301
  2. NEXIUM [Suspect]
     Indication: COUGH
     Route: 048
     Dates: start: 20070301
  3. BACTRIM [Concomitant]
     Dates: end: 20070505
  4. PREDNISONE [Concomitant]
     Dates: end: 20070506

REACTIONS (4)
  - PRURITUS [None]
  - PYREXIA [None]
  - RASH PRURITIC [None]
  - ULCER [None]
